FAERS Safety Report 7812234-4 (Version None)
Quarter: 2011Q4

REPORT INFORMATION
  Report Type: 
  Country: None (occurrence: None)
  Receive Date: 20111011
  Receipt Date: 20110927
  Transmission Date: 20120403
  Serious: Yes (Life-Threatening, Hospitalization)
  Sender: FDA-Public Use
  Company Number: 2008SP017789

PATIENT
  Age: 34 Year
  Sex: Female
  Weight: 65.5 kg

DRUGS (9)
  1. ONDANSETRON HYDROCHLORIDE [Suspect]
     Dates: end: 20080122
  2. ACYCLOVIR [Suspect]
     Dosage: 200 MG
  3. CYTARABINE [Suspect]
  4. NOXAFIL [Suspect]
     Indication: HEPATOSPLENIC CANDIDIASIS
     Dosage: 200 MG; QID; PO
     Route: 048
     Dates: start: 20071019, end: 20080125
  5. POTASSIUM CHLORIDE [Suspect]
     Indication: PRODUCT USED FOR UNKNOWN INDICATION
     Dosage: 750 MG; PO
     Route: 048
  6. PANTOPRAZOLE [Suspect]
     Dosage: 40 MG
  7. ALLOPURINOL [Suspect]
     Dosage: 100 MG; PO
     Route: 048
  8. ETOPOSIDE [Suspect]
  9. VOGALENE [Suspect]

REACTIONS (9)
  - DRUG INTERACTION [None]
  - ATRIOVENTRICULAR BLOCK SECOND DEGREE [None]
  - ARRHYTHMIA SUPRAVENTRICULAR [None]
  - SINOATRIAL BLOCK [None]
  - CARDIAC ARREST [None]
  - SINUS TACHYCARDIA [None]
  - BRADYCARDIA [None]
  - NODAL ARRHYTHMIA [None]
  - ARRHYTHMIA [None]
